FAERS Safety Report 4582584-6 (Version None)
Quarter: 2005Q1

REPORT INFORMATION
  Report Type: 
  Country: None (occurrence: None)
  Receive Date: 20050125
  Receipt Date: 20040825
  Transmission Date: 20050727
  Serious: No
  Sender: FDA-Public Use
  Company Number: USA040876564

PATIENT
  Age: 62 Year
  Sex: Female
  Weight: 48 kg

DRUGS (1)
  1. FORTEO [Suspect]
     Indication: OSTEOPOROSIS
     Dosage: 20 UG DAY
     Dates: start: 20040617

REACTIONS (5)
  - BURNING SENSATION [None]
  - INJECTION SITE ERYTHEMA [None]
  - INJECTION SITE PARAESTHESIA [None]
  - INJECTION SITE URTICARIA [None]
  - PALPITATIONS [None]
